FAERS Safety Report 6075538-4 (Version None)
Quarter: 2009Q1

REPORT INFORMATION
  Report Type: 
  Country: None (occurrence: None)
  Receive Date: 20090210
  Receipt Date: 20090210
  Transmission Date: 20090719
  Serious: Yes (Life-Threatening, Other)
  Sender: FDA-Public Use
  Company Number: None

PATIENT
  Age: 70 Year
  Sex: Female
  Weight: 73.0291 kg

DRUGS (1)
  1. CYCLOBENZAPRINE [Suspect]
     Indication: BACK INJURY
     Dosage: 3 TIMES A DAY PO
     Route: 048
     Dates: start: 20081228, end: 20081229

REACTIONS (1)
  - SOMNAMBULISM [None]
